FAERS Safety Report 8292843 (Version 2)
Quarter: 2014Q3

REPORT INFORMATION
  Report Type: Spontaneous
  Country: US (occurrence: US)
  Receive Date: 20111215
  Receipt Date: 20140801
  Transmission Date: 20150326
  Serious: Yes (Hospitalization)
  Sender: FDA-Public Use
  Company Number: US-GLAXOSMITHKLINE-A0882322A

PATIENT
  Sex: Male
  Weight: 122.7 kg

DRUGS (2)
  1. AVANDIA [Suspect]
     Active Substance: ROSIGLITAZONE MALEATE
     Indication: DIABETES MELLITUS
     Dosage: 8MG PER DAY
     Route: 048
     Dates: start: 200008, end: 200102
  2. ROSIGLITAZONE [Suspect]
     Active Substance: ROSIGLITAZONE
     Indication: DIABETES MELLITUS
     Route: 048

REACTIONS (5)
  - Cardiovascular disorder [Unknown]
  - Oedema peripheral [Unknown]
  - Hypertension [Unknown]
  - Cardiac disorder [Unknown]
  - Thrombosis [Not Recovered/Not Resolved]
